FAERS Safety Report 10072519 (Version 1)
Quarter: 2014Q2

REPORT INFORMATION
  Report Type: Spontaneous
  Country: US (occurrence: None)
  Receive Date: 20140410
  Receipt Date: 20140410
  Transmission Date: 20141212
  Serious: Yes (Other)
  Sender: FDA-Public Use
  Company Number: None

PATIENT
  Age: 48 Year
  Sex: Female

DRUGS (3)
  1. SANDOSTATIN [Suspect]
     Indication: CARCINOID SYNDROME
     Dosage: 20 MG IM Q 4 WEEKS 3 YEARS AGO- RESTARTED RECENTLY
     Route: 030
  2. ACTOSE [Concomitant]
  3. BP MEDICATIONS [Concomitant]

REACTIONS (4)
  - Diabetes mellitus [None]
  - Hypertension [None]
  - Hypoglycaemia [None]
  - Similar reaction on previous exposure to drug [None]
